FAERS Safety Report 14749867 (Version 3)
Quarter: 2020Q2

REPORT INFORMATION
  Report Type: Report from Study
  Country: DE (occurrence: DE)
  Receive Date: 20180412
  Receipt Date: 20200417
  Transmission Date: 20200713
  Serious: Yes (Hospitalization)
  Sender: FDA-Public Use
  Company Number: DE-BRISTOL-MYERS SQUIBB COMPANY-BMS-2017-121607

PATIENT
  Age: 77 Year
  Sex: Male
  Weight: 79 kg

DRUGS (14)
  1. DEXAMETHASON [DEXAMETHASONE] [Concomitant]
     Active Substance: DEXAMETHASONE
     Indication: PRODUCT USED FOR UNKNOWN INDICATION
     Dosage: 0.5 MG, QD
     Route: 048
     Dates: start: 20170820, end: 20170822
  2. PANTOZOL [Concomitant]
     Active Substance: PANTOPRAZOLE SODIUM
     Indication: PROPHYLAXIS
     Dosage: 40 MG, QD
     Route: 048
     Dates: start: 20170726
  3. L-THYROXINE [LEVOTHYROXINE] [Concomitant]
     Active Substance: LEVOTHYROXINE
     Indication: THYROID DISORDER
     Dosage: 25 MG, QD
     Route: 048
     Dates: end: 20170612
  4. DEXAMETHASON [DEXAMETHASONE] [Concomitant]
     Active Substance: DEXAMETHASONE
     Indication: PRODUCT USED FOR UNKNOWN INDICATION
     Dosage: 1 MG, QD
     Route: 048
     Dates: start: 20170817, end: 20170819
  5. ENOXAPARIN [Concomitant]
     Active Substance: ENOXAPARIN
     Indication: THROMBOSIS PROPHYLAXIS
     Dosage: UNK
     Route: 065
     Dates: start: 20170324
  6. NIVOLUMAB [Suspect]
     Active Substance: NIVOLUMAB
     Indication: METASTATIC RENAL CELL CARCINOMA
     Dosage: 3 MILLIGRAM/KILOGRAM
     Route: 042
     Dates: start: 20170814, end: 20171025
  7. NORSPAN [NORFLOXACIN] [Concomitant]
     Active Substance: NORFLOXACIN
     Indication: PAIN
     Dosage: 4 MILLIGRAM, PRN
     Route: 048
     Dates: start: 20170613
  8. DEXAMETHASON [DEXAMETHASONE] [Concomitant]
     Active Substance: DEXAMETHASONE
     Indication: PROPHYLAXIS
     Dosage: 2 MG, QD
     Route: 042
     Dates: start: 20170324, end: 20170816
  9. NOVALGIN [CAFFEINE;PARACETAMOL;PROPYPHENAZONE] [Concomitant]
     Active Substance: ACETAMINOPHEN\CAFFEINE\PROPYPHENAZONE
     Indication: PROPHYLAXIS
     Dosage: 500 MG, QID
     Route: 048
     Dates: start: 20170314
  10. L-THYROXINE [LEVOTHYROXINE] [Concomitant]
     Active Substance: LEVOTHYROXINE
     Indication: PRODUCT USED FOR UNKNOWN INDICATION
     Dosage: 75 MG, QD
     Route: 048
     Dates: start: 20170719
  11. ONDANSETRON [Concomitant]
     Active Substance: ONDANSETRON
     Indication: PROPHYLAXIS
     Dosage: 4 MG, PRN
     Route: 048
  12. METAMIZOL [METAMIZOLE SODIUM] [Concomitant]
     Indication: PROPHYLAXIS
     Dosage: 1 DF = 30 OT, QID
     Route: 048
     Dates: start: 20170324
  13. NORSPAN [NORFLOXACIN] [Concomitant]
     Active Substance: NORFLOXACIN
     Indication: PROPHYLAXIS
     Dosage: 5 MG, UNK
     Route: 061
     Dates: start: 20170324
  14. L-THYROXINE [LEVOTHYROXINE] [Concomitant]
     Active Substance: LEVOTHYROXINE
     Indication: PRODUCT USED FOR UNKNOWN INDICATION
     Dosage: 50 MG, QD
     Route: 048
     Dates: start: 20170613, end: 20170708

REACTIONS (9)
  - Chills [Unknown]
  - Blood calcium increased [Recovered/Resolved]
  - Blood creatinine increased [Not Recovered/Not Resolved]
  - Abdominal pain upper [Unknown]
  - Blood thyroid stimulating hormone increased [Recovered/Resolved]
  - Blood potassium increased [Recovered/Resolved]
  - Gamma-glutamyltransferase increased [Recovered/Resolved]
  - Fatigue [Unknown]
  - Haemoglobin decreased [Not Recovered/Not Resolved]

NARRATIVE: CASE EVENT DATE: 20170814
